FAERS Safety Report 18095762 (Version 9)
Quarter: 2022Q1

REPORT INFORMATION
  Report Type: Report from Study
  Country: AR (occurrence: AR)
  Receive Date: 20200730
  Receipt Date: 20220321
  Transmission Date: 20220423
  Serious: Yes (Other)
  Sender: FDA-Public Use
  Company Number: NVSC2020AR210754

PATIENT
  Age: 42 Year
  Sex: Male

DRUGS (3)
  1. SANDOSTATIN LAR DEPOT [Suspect]
     Active Substance: OCTREOTIDE ACETATE
     Indication: Acromegaly
     Dosage: 30 MG, QMO, (EVERY 28 DAYS)
     Route: 065
     Dates: start: 20190103
  2. SANDOSTATIN LAR DEPOT [Suspect]
     Active Substance: OCTREOTIDE ACETATE
     Dosage: 30 MG, QMO (EVERY 28 DAYS)
     Route: 030
     Dates: start: 20190131
  3. SANDOSTATIN LAR DEPOT [Suspect]
     Active Substance: OCTREOTIDE ACETATE
     Dosage: 20 MG, QMO, (EVERY 28 DAYS)
     Route: 058

REACTIONS (4)
  - Condition aggravated [Unknown]
  - Incorrect dose administered [Unknown]
  - Neoplasm [Unknown]
  - Arthralgia [Unknown]

NARRATIVE: CASE EVENT DATE: 20200301
